FAERS Safety Report 4514465-8 (Version None)
Quarter: 2004Q4

REPORT INFORMATION
  Report Type: 
  Country: None (occurrence: None)
  Receive Date: 20040928
  Receipt Date: 20040719
  Transmission Date: 20050328
  Serious: No
  Sender: FDA-Public Use
  Company Number: 04P-163-0267466-00

PATIENT
  Age: 78 Year
  Sex: Male
  Weight: 54.8852 kg

DRUGS (2)
  1. HUMIRA [Suspect]
     Indication: RHEUMATOID ARTHRITIS
     Dosage: 40 MG, 1 IN 2 WK, SUBCUTANEOUS
     Route: 058
     Dates: start: 20040501
  2. DEXTROPROPOXYPHENE HYDROCHLORIDE [Concomitant]

REACTIONS (3)
  - CHEST DISCOMFORT [None]
  - DIARRHOEA [None]
  - FLATULENCE [None]
